FAERS Safety Report 8809161 (Version 1)
Quarter: 2012Q4

REPORT INFORMATION
  Report Type: Spontaneous
  Country: US (occurrence: None)
  Receive Date: 20120921
  Receipt Date: 20120921
  Transmission Date: 20130627
  Serious: Yes (Other)
  Sender: FDA-Public Use
  Company Number: None

PATIENT
  Age: 62 Year
  Sex: Female
  Weight: 63.5 kg

DRUGS (3)
  1. CLINDAMYCIN [Suspect]
     Indication: BLOCKED TEAR DUCT (EXCL CONGENITAL)
     Route: 048
     Dates: start: 20120820, end: 20120831
  2. CLINDAMYCIN [Suspect]
     Indication: PROPHYLAXIS
     Route: 048
     Dates: start: 20120820, end: 20120831
  3. CLINDAMYCIN [Suspect]
     Indication: POSTOPERATIVE CARE
     Route: 048
     Dates: start: 20120820, end: 20120831

REACTIONS (2)
  - Clostridium difficile colitis [None]
  - Pyrexia [None]
